FAERS Safety Report 5676055-3 (Version None)
Quarter: 2008Q1

REPORT INFORMATION
  Report Type: 
  Country: None (occurrence: None)
  Receive Date: 20080321
  Receipt Date: 20080313
  Transmission Date: 20080703
  Serious: Yes (Other)
  Sender: FDA-Public Use
  Company Number: GB-ROCHE-553465

PATIENT
  Age: 33 Year
  Sex: Female
  Weight: 89 kg

DRUGS (4)
  1. ORLISTAT [Suspect]
     Indication: OBESITY
     Route: 048
     Dates: start: 20070618
  2. PAMIDRONATE DISODIUM [Concomitant]
     Indication: RHEUMATOID ARTHRITIS
     Dosage: IV DRIP
     Route: 041
  3. ENBREL [Concomitant]
     Indication: RHEUMATOID ARTHRITIS
     Route: 058
  4. ARCOXIA [Concomitant]
     Indication: RHEUMATOID ARTHRITIS
     Route: 048

REACTIONS (1)
  - NEPHROLITHIASIS [None]
